FAERS Safety Report 14916451 (Version 1)
Quarter: 2018Q2

REPORT INFORMATION
  Report Type: Spontaneous
  Country: US (occurrence: US)
  Receive Date: 20180519
  Receipt Date: 20180519
  Transmission Date: 20180711
  Serious: No
  Sender: FDA-Public Use
  Company Number: US-TEVA-2018-US-892575

PATIENT
  Age: 80 Year
  Sex: Female

DRUGS (1)
  1. CARTIA XT [Suspect]
     Active Substance: DILTIAZEM HYDROCHLORIDE
     Indication: ATRIAL FIBRILLATION
     Dates: start: 2017

REACTIONS (3)
  - Rash [Unknown]
  - Pruritus [Unknown]
  - Urticaria [Unknown]

NARRATIVE: CASE EVENT DATE: 2017
